FAERS Safety Report 14271146 (Version 1)
Quarter: 2017Q4

REPORT INFORMATION
  Report Type: Spontaneous
  Country: FR (occurrence: FR)
  Receive Date: 20171211
  Receipt Date: 20171211
  Transmission Date: 20180321
  Serious: Yes (Hospitalization)
  Sender: FDA-Public Use
  Company Number: FR-PFIZER INC-2017525843

PATIENT
  Age: 30 Year
  Sex: Female

DRUGS (3)
  1. EPINEPHRINE. [Suspect]
     Active Substance: EPINEPHRINE
     Indication: CATARACT OPERATION
     Dosage: UNK
     Route: 050
  2. APROKAM [Suspect]
     Active Substance: CEFUROXIME SODIUM
     Indication: CATARACT OPERATION
     Dosage: UNK
     Route: 050
  3. MIOCHOLE [Suspect]
     Active Substance: ACETYLCHOLINE CHLORIDE
     Indication: CATARACT OPERATION
     Dosage: UNK
     Route: 050

REACTIONS (2)
  - Visual acuity reduced [Recovered/Resolved]
  - Cataract operation complication [Recovered/Resolved]

NARRATIVE: CASE EVENT DATE: 2017
